FAERS Safety Report 22245246 (Version 2)
Quarter: 2023Q2

REPORT INFORMATION
  Report Type: Spontaneous
  Country: CN (occurrence: CN)
  Receive Date: 20230424
  Receipt Date: 20230522
  Transmission Date: 20230721
  Serious: Yes (Other)
  Sender: FDA-Public Use
  Company Number: CN-ORGANON-O2304CHN001702

PATIENT
  Age: 54 Year
  Sex: Female

DRUGS (1)
  1. REMERON [Suspect]
     Active Substance: MIRTAZAPINE
     Indication: Sleep disorder
     Dosage: UNK
     Route: 048

REACTIONS (5)
  - Drug dependence [Not Recovered/Not Resolved]
  - Anxiety [Unknown]
  - High density lipoprotein increased [Unknown]
  - Product use in unapproved indication [Unknown]
  - Product availability issue [Unknown]
